FAERS Safety Report 4310298-6 (Version None)
Quarter: 2004Q1

REPORT INFORMATION
  Report Type: 
  Country: None (occurrence: None)
  Receive Date: 20040303
  Receipt Date: 20040119
  Transmission Date: 20041129
  Serious: Yes (Life-Threatening, Hospitalization)
  Sender: FDA-Public Use
  Company Number: WAES 0401DEU00090

PATIENT
  Age: 43 Year
  Sex: Female
  Weight: 74 kg

DRUGS (13)
  1. [THERAPY UNSPECIFIED] [Concomitant]
  2. ATROPINE [Concomitant]
  3. DOBUTAMINE HYDROCHLORIDE [Concomitant]
     Dates: start: 20040104
  4. DOPAMINE HYDROCHLORIDE [Concomitant]
     Dates: start: 20040104
  5. EPINEPHRINE HYDROCHLORIDE [Concomitant]
  6. HEPARIN [Concomitant]
     Dates: start: 20040104
  7. METAPROTERENOL SULFATE [Concomitant]
  8. PROPOFOL [Concomitant]
     Dates: start: 20040104
  9. VIOXX [Suspect]
     Indication: TIBIA FRACTURE
     Route: 048
     Dates: start: 20040101, end: 20040103
  10. SODIUM BICARBONATE [Concomitant]
  11. SODIUM CHLORIDE [Concomitant]
  12. SUFENTANIL CITRATE [Concomitant]
     Dates: start: 20040104
  13. TINZAPARIN SODIUM [Concomitant]

REACTIONS (4)
  - BLOOD CREATINE PHOSPHOKINASE INCREASED [None]
  - BLOOD CREATINE PHOSPHOKINASE MB INCREASED [None]
  - DRUG TOXICITY [None]
  - HEPATOCELLULAR DAMAGE [None]
